FAERS Safety Report 24614276 (Version 2)
Quarter: 2024Q4

REPORT INFORMATION
  Report Type: Spontaneous
  Country: CZ (occurrence: CZ)
  Receive Date: 20241113
  Receipt Date: 20241210
  Transmission Date: 20250114
  Serious: Yes (Other)
  Sender: BAUSCH AND LOMB
  Company Number: CZ-CELLTRION INC.-2024CZ026615

PATIENT
  Age: 25 Year
  Sex: Male

DRUGS (7)
  1. AZATHIOPRINE [Suspect]
     Active Substance: AZATHIOPRINE
     Indication: Behcet^s syndrome
     Dosage: COMBINATION OF INFLIXIMAB, PREDNISONE, AND AZATHIOPRINE
     Route: 065
  2. AZATHIOPRINE [Suspect]
     Active Substance: AZATHIOPRINE
     Dosage: ADALIMUMAB COMBINED WITH A LOW DOSE OF PREDNISONE AND AZATHIOPRINE WAS INITIATED
     Route: 065
  3. INFLIXIMAB [Suspect]
     Active Substance: INFLIXIMAB
     Indication: Behcet^s syndrome
     Dosage: COMBINATION OF INFLIXIMAB, PREDNISONE, AND AZATHIOPRINE
     Route: 065
  4. ADALIMUMAB [Suspect]
     Active Substance: ADALIMUMAB
     Indication: Behcet^s syndrome
     Dosage: ADALIMUMAB COMBINED WITH A LOW DOSE OF PREDNISONE AND AZATHIOPRINE WAS INITIATED
     Route: 065
  5. PREDNISONE [Suspect]
     Active Substance: PREDNISONE
     Indication: Behcet^s syndrome
     Dosage: COMBINATION OF INFLIXIMAB, PREDNISONE, AND AZATHIOPRINE
     Route: 065
  6. PREDNISONE [Suspect]
     Active Substance: PREDNISONE
     Dosage: ADALIMUMAB COMBINED WITH A LOW DOSE OF PREDNISONE AND AZATHIOPRINE WAS INITIATED
     Route: 065
  7. MYCOPHENOLATE MOFETIL [Suspect]
     Active Substance: MYCOPHENOLATE MOFETIL
     Indication: Behcet^s syndrome
     Dosage: UNK
     Route: 065

REACTIONS (4)
  - Macular oedema [Recovered/Resolved]
  - Eye inflammation [Unknown]
  - Latent tuberculosis [Unknown]
  - Drug effective for unapproved indication [Unknown]
